FAERS Safety Report 12364576 (Version 3)
Quarter: 2016Q3

REPORT INFORMATION
  Report Type: Spontaneous
  Country: US (occurrence: US)
  Receive Date: 20160513
  Receipt Date: 20160822
  Transmission Date: 20161109
  Serious: Yes (Death, Disabling, Other)
  Sender: FDA-Public Use
  Company Number: US-JNJFOC-20160510555

PATIENT
  Sex: Male

DRUGS (2)
  1. IMBRUVICA [Suspect]
     Active Substance: IBRUTINIB
     Indication: PRODUCT USED FOR UNKNOWN INDICATION
     Route: 065
  2. XTANDI [Suspect]
     Active Substance: ENZALUTAMIDE
     Indication: PROSTATE CANCER
     Route: 048
     Dates: start: 20160131, end: 20160602

REACTIONS (17)
  - Death [Fatal]
  - Eating disorder [Unknown]
  - Wrong technique in product usage process [Unknown]
  - Abasia [Unknown]
  - Renal impairment [Unknown]
  - Mental disorder [Unknown]
  - Joint swelling [Unknown]
  - Peripheral swelling [Unknown]
  - Dysphagia [Unknown]
  - Fatigue [Unknown]
  - Mass [Unknown]
  - Decubitus ulcer [Unknown]
  - Cough [Unknown]
  - Unresponsive to stimuli [Unknown]
  - Musculoskeletal disorder [Unknown]
  - Dehydration [Unknown]
  - Urinary tract infection [Unknown]
